FAERS Safety Report 6202054-9 (Version None)
Quarter: 2009Q2

REPORT INFORMATION
  Report Type: 
  Country: None (occurrence: None)
  Receive Date: 20090526
  Receipt Date: 20090518
  Transmission Date: 20091009
  Serious: Yes (Hospitalization)
  Sender: FDA-Public Use
  Company Number: B0574667A

PATIENT
  Sex: Male

DRUGS (2)
  1. VALTREX [Suspect]
     Indication: HERPES ZOSTER
     Route: 048
     Dates: start: 20090507, end: 20090511
  2. VOLTAREN [Suspect]
     Indication: DRUG USE FOR UNKNOWN INDICATION
     Route: 048

REACTIONS (4)
  - ALTERED STATE OF CONSCIOUSNESS [None]
  - BLOOD CREATININE INCREASED [None]
  - DELIRIUM [None]
  - ENCEPHALOPATHY [None]
